FAERS Safety Report 24214376 (Version 1)
Quarter: 2024Q3

REPORT INFORMATION
  Report Type: Report from Study
  Country: SE (occurrence: SE)
  Receive Date: 20240815
  Receipt Date: 20240815
  Transmission Date: 20241016
  Serious: Yes (Other)
  Sender: TEVA
  Company Number: SE-TEVA-VS-3233036

PATIENT
  Age: 61 Year

DRUGS (1)
  1. DICLOFENAC [Suspect]
     Active Substance: DICLOFENAC
     Indication: Analgesic therapy
     Route: 065

REACTIONS (3)
  - Flushing [Unknown]
  - Anaphylactic reaction [Unknown]
  - Syncope [Unknown]
